FAERS Safety Report 7887819-X (Version None)
Quarter: 2011Q4

REPORT INFORMATION
  Report Type: 
  Country: None (occurrence: None)
  Receive Date: 20111101
  Receipt Date: 20111025
  Transmission Date: 20120403
  Serious: Yes (Hospitalization, Other)
  Sender: FDA-Public Use
  Company Number: AUR-APL-2011-05566

PATIENT
  Age: 28 Day
  Sex: Female
  Weight: 3.31 kg

DRUGS (2)
  1. SERTRALINE HYDROCHLORIDE [Suspect]
     Indication: DEPRESSION
     Dosage: (100 MG,1 D) ,TRANSPLACENTAL
     Route: 064
  2. FOLIC ACID [Concomitant]

REACTIONS (8)
  - BLOOD PH DECREASED [None]
  - CYANOSIS NEONATAL [None]
  - SCLERAL HAEMORRHAGE [None]
  - AGITATION NEONATAL [None]
  - GROSS MOTOR DELAY [None]
  - MATERNAL DRUGS AFFECTING FOETUS [None]
  - CERVICAL SPINAL STENOSIS [None]
  - SKIN HAEMORRHAGE [None]
